FAERS Safety Report 11813276 (Version 1)
Quarter: 2015Q4

REPORT INFORMATION
  Report Type: Spontaneous
  Country: US (occurrence: None)
  Receive Date: 20151208
  Receipt Date: 20151208
  Transmission Date: 20160305
  Serious: Yes (Hospitalization)
  Sender: FDA-Public Use
  Company Number: None

PATIENT
  Age: 84 Year
  Sex: Male
  Weight: 122.3 kg

DRUGS (15)
  1. MAG OX [Concomitant]
     Active Substance: MAGNESIUM OXIDE
  2. XALATAN [Concomitant]
     Active Substance: LATANOPROST
  3. LIPITOR [Concomitant]
     Active Substance: ATORVASTATIN CALCIUM
  4. COREG [Concomitant]
     Active Substance: CARVEDILOL
  5. WARFARIN [Suspect]
     Active Substance: WARFARIN
     Indication: ATRIAL FIBRILLATION
     Dosage: 2.5 MG MWF?5 MG TTHSS
     Route: 048
  6. VITAMIN B12 [Concomitant]
     Active Substance: CYANOCOBALAMIN
  7. PROSCAR [Concomitant]
     Active Substance: FINASTERIDE
  8. ALPHAGAN P [Concomitant]
     Active Substance: BRIMONIDINE TARTRATE
  9. DIURIL [Concomitant]
     Active Substance: CHLOROTHIAZIDE
  10. ATROVENT [Concomitant]
     Active Substance: IPRATROPIUM BROMIDE
  11. NTG [Concomitant]
     Active Substance: NITROGLYCERIN
  12. ASA [Suspect]
     Active Substance: ASPIRIN
     Indication: CORONARY ARTERY DISEASE
     Route: 048
  13. NEURONTIN [Concomitant]
     Active Substance: GABAPENTIN
  14. SINEMET [Concomitant]
     Active Substance: CARBIDOPA\LEVODOPA
  15. VITAMIN D3 [Concomitant]
     Active Substance: CHOLECALCIFEROL

REACTIONS (5)
  - Gastrointestinal arteriovenous malformation [None]
  - Gastrointestinal angiodysplasia haemorrhagic [None]
  - Haemorrhagic anaemia [None]
  - Ischaemia [None]
  - Troponin increased [None]

NARRATIVE: CASE EVENT DATE: 20150408
